FAERS Safety Report 17358899 (Version 2)
Quarter: 2020Q1

REPORT INFORMATION
  Report Type: Spontaneous
  Country: TR (occurrence: TR)
  Receive Date: 20200202
  Receipt Date: 20200304
  Transmission Date: 20200409
  Serious: Yes (Other)
  Sender: FDA-Public Use
  Company Number: NVSC2020TR024154

PATIENT

DRUGS (1)
  1. ADALIMUMAB [Suspect]
     Active Substance: ADALIMUMAB
     Indication: BEHCET^S SYNDROME
     Dosage: 40 MG, Q2W
     Route: 058

REACTIONS (3)
  - Product use in unapproved indication [Unknown]
  - Behcet^s syndrome [Unknown]
  - Renal vein thrombosis [Unknown]
